FAERS Safety Report 8375132 (Version 3)
Quarter: 2012Q4

REPORT INFORMATION
  Report Type: 
  Country: US (occurrence: US)
  Receive Date: 20120131
  Receipt Date: 20120907
  Transmission Date: 20130627
  Serious: Yes (Life-Threatening, Hospitalization)
  Sender: FDA-Public Use
  Company Number: US-BAYER-2012-008698

PATIENT
  Age: 18 Year
  Sex: Female
  Weight: 45.35 kg

DRUGS (59)
  1. YAZ [Suspect]
     Indication: ACNE
     Dosage: UNK
     Dates: start: 2008, end: 2009
  2. LEVAQUIN [Concomitant]
     Dosage: 500 mg, daily
     Route: 048
  3. DIFLUCAN [Concomitant]
     Dosage: 400 mg, daily
     Route: 048
     Dates: start: 20090311
  4. NYSTATIN [Concomitant]
     Dosage: 4 ml, QID daily
     Route: 048
     Dates: start: 20090311
  5. NYSTATIN [Concomitant]
     Dosage: 30 g, TID
     Dates: start: 20090320
  6. VANCOMYCIN [Concomitant]
     Indication: MUCOSAL INFLAMMATION
     Dosage: UNK
     Dates: start: 20090311, end: 20090313
  7. VANCOMYCIN [Concomitant]
     Indication: MUCOSAL INFLAMMATION
     Dosage: 1000 mg, BID
     Route: 042
     Dates: start: 20090520
  8. LORATADINE [Concomitant]
     Dosage: 10 mg, daily
     Route: 048
     Dates: start: 20090311, end: 20090317
  9. ZOSYN [Concomitant]
     Indication: MUCOSAL INFLAMMATION
     Dosage: 3 g, QID
     Route: 042
     Dates: start: 20090311, end: 20090317
  10. DEXTROMETHORPHAN [Concomitant]
     Indication: COUGH
     Dosage: 30 mg,  every 6 hours as PRN
     Route: 048
     Dates: start: 20090317
  11. LANTUS [Concomitant]
     Indication: DIABETES MELLITUS
     Dosage: 20 units at night
     Route: 058
     Dates: start: 20090317
  12. ONDANSETRON [Concomitant]
     Indication: NAUSEA
     Dosage: 8 mg, every 4-6 hours PRN
     Route: 048
     Dates: start: 20090317
  13. OXYCODONE [Concomitant]
     Indication: PAIN
     Dosage: 5 mg, every 4 hours as PRN
     Route: 048
     Dates: start: 20090317
  14. PENICILLIN VK [Concomitant]
     Dosage: 150 mg, BID
     Route: 048
     Dates: start: 20090317
  15. PREDNISONE [Concomitant]
     Dosage: 5 mg, daily
     Route: 048
     Dates: start: 20090317
  16. CEFUROXIME [Concomitant]
     Dosage: 250 mg, BID
     Route: 048
     Dates: start: 20090317
  17. ATIVAN [Concomitant]
     Dosage: 1.3 mg, every 6 hours as PRN
     Route: 042
     Dates: start: 20090320
  18. FOSPHENYTOIN [Concomitant]
     Dosage: UNK
     Dates: start: 20090320
  19. AZACTAM [Concomitant]
     Dosage: 2000 mg, TID
     Route: 042
     Dates: start: 20090320
  20. CEREBYX [Concomitant]
     Dosage: 95 mg, TID
     Route: 042
     Dates: start: 20090320
  21. PROPOFOL [Concomitant]
     Dosage: 50 mg, ONCE
     Route: 042
     Dates: start: 20090320
  22. PHENYTOIN [Concomitant]
     Dosage: 95 mg, TID
     Route: 048
     Dates: start: 20090322
  23. HUMALOG [Concomitant]
     Dosage: Sliding scale
     Route: 058
     Dates: start: 20090322
  24. ASPIRIN [Concomitant]
     Dosage: 81 mg, daily
     Route: 048
     Dates: start: 20090323
  25. ENALAPRIL [Concomitant]
     Dosage: 10 mg, daily
     Route: 048
     Dates: start: 20090323
  26. SMZ-TMP [Concomitant]
     Dosage: 400mg-80mg, 1.5 tablet
     Route: 048
     Dates: start: 20090323
  27. KEPPRA [Concomitant]
     Dosage: 500 mg, BID
     Dates: start: 20090323
  28. BACTRIM [Concomitant]
     Dosage: 1 1/2 tablet on Monday, Tuesday, Wednesday
     Route: 048
     Dates: start: 20090311, end: 20090324
  29. RANITIDINE [Concomitant]
     Dosage: 150 mg, BID
     Route: 048
     Dates: start: 20090311, end: 20090324
  30. DOCUSATE SODIUM [Concomitant]
     Dosage: 100 mg, BID
     Route: 048
     Dates: start: 20090317, end: 20090324
  31. STOMATOLOGICALS, MOUTH PREPARATIONS [Concomitant]
     Indication: MUCOSAL INFLAMMATION
     Dosage: UNK UNK, swish and spit QID
     Route: 048
     Dates: start: 20090317, end: 20090324
  32. NOVOLOG [Concomitant]
     Indication: DIABETES MELLITUS
     Dosage: 1 unit every 10 grams of cards, blood glucose 50 greater than 150 after meals
     Route: 058
     Dates: start: 20090317, end: 20090324
  33. TRAZODONE [Concomitant]
     Dosage: 25 mg, at night
     Route: 048
     Dates: start: 20090324
  34. VANCOMYCIN/HEPARIN FLUSH [Concomitant]
     Dosage: 2 ml, every 6 hours as  PRN
     Route: 042
     Dates: start: 20090324
  35. CYTOXAN [Concomitant]
     Indication: CHEMOTHERAPY
     Dosage: 1160 mg, UNK
     Route: 042
     Dates: start: 20090330
  36. BLEOMYCIN [Concomitant]
     Indication: CHEMOTHERAPY
     Dosage: 7.2 units
     Route: 042
     Dates: start: 20090330
  37. VINCRISTINE [Concomitant]
     Indication: CHEMOTHERAPY
     Dosage: 2 mg, UNK
     Route: 042
     Dates: start: 20090330
  38. DOXORUBICIN [Concomitant]
     Indication: CHEMOTHERAPY
     Dosage: 44 mg, UNK
     Route: 042
     Dates: start: 20090330
  39. MESNA [Concomitant]
     Indication: CHEMOTHERAPY
     Dosage: UNK
     Dates: start: 20090330
  40. TYLENOL [Concomitant]
     Dosage: 650 mg, every 6 hours as PRN
     Route: 048
     Dates: start: 20090330
  41. ANESTHETICS, LOCAL [Concomitant]
     Dosage: 70 mg, PRN
     Route: 061
     Dates: start: 20090330
  42. LIDOCAINE/PRILOCAINE [LIDOCAINE,PRILOCAINE] [Concomitant]
     Dosage: 2.5%-2.5% apply 1-3 hours before procedure
     Dates: start: 20090330
  43. SOFT PARAFFIN AND FAT PRODUCTS [Concomitant]
     Dosage: UNK UNK, TID
     Route: 061
     Dates: start: 20090403
  44. MIRALAX [Concomitant]
     Indication: CONSTIPATION
     Dosage: One scoop in 8 ounces water as needed daily
     Route: 048
     Dates: start: 20090403
  45. NEULASTA [Concomitant]
     Dosage: 6 mg, UNK
     Route: 058
     Dates: start: 20090403
  46. MYADEC [Concomitant]
     Dosage: 1 tablet in morning
     Route: 048
     Dates: start: 20090502
  47. MULTI VITAMIN [Concomitant]
     Dosage: 1 tablet daily
     Route: 048
     Dates: start: 20090503
  48. PIPERACILLIN W/TAZOBACTAM [Concomitant]
     Dosage: 400 mg, QID
     Route: 042
     Dates: start: 20090503
  49. ZINC OXIDE [Concomitant]
     Dosage: UNK UNK, PRN
     Route: 061
     Dates: start: 20090503
  50. CLOTRIMAZOLE [Concomitant]
     Dosage: UNK UNK, PRN
     Route: 061
     Dates: start: 20090503
  51. FUROSEMIDE [Concomitant]
     Dosage: 20 mg, daily
     Route: 042
     Dates: start: 20090514
  52. ACETAMINOPHEN [Concomitant]
     Dosage: 500 mg, every 4 hours as PRN
     Route: 048
     Dates: start: 20090520
  53. GENTAMYCIN [Concomitant]
     Dosage: 150 mg, BID
     Dates: start: 20090520
  54. BUPIVACAIN HYDROCHLORID W/EPINEPHRIN [Concomitant]
     Dosage: UNK
     Dates: start: 20090608
  55. FENTANYL CITRATE [Concomitant]
     Dosage: UNK
     Dates: start: 20090608
  56. MIDAZOLAM [Concomitant]
     Dosage: UNK
     Dates: start: 20090608
  57. ZEMURON [Concomitant]
     Dosage: UNK
     Dates: start: 20090608
  58. SOLU-CORTEF [Concomitant]
     Dosage: UNK
     Dates: start: 20090608
  59. KETOROLAC TROMETHAMINE [Concomitant]
     Dosage: UNK
     Dates: start: 20090608

REACTIONS (4)
  - Pulmonary embolism [None]
  - Injury [None]
  - Pain [None]
  - Pain [None]
